FAERS Safety Report 8874704 (Version 1)
Quarter: 2012Q4

REPORT INFORMATION
  Report Type: 
  Country: FR (occurrence: FR)
  Receive Date: 20121031
  Receipt Date: 20121031
  Transmission Date: 20130627
  Serious: Yes (Hospitalization)
  Sender: FDA-Public Use
  Company Number: FR-B.I. PHARMACEUTICALS,INC./RIDGEFIELD-2012-FF-01245FF

PATIENT
  Age: 34 Year
  Sex: Male
  Weight: 98 kg

DRUGS (10)
  1. PRADAXA [Suspect]
     Dosage: 220 mg
     Route: 048
  2. INORIAL [Concomitant]
  3. LYRICA [Concomitant]
     Dosage: 600 mg
  4. COVERSYL [Concomitant]
     Dosage: 2.5 mg
  5. TAHOR [Concomitant]
     Dosage: 40 mg
  6. EXACOR [Concomitant]
     Dosage: 260 mg
  7. CIPRALAN [Concomitant]
  8. DOLIPRANE [Concomitant]
  9. AMYCOR [Concomitant]
  10. TRAZOLAN [Concomitant]

REACTIONS (2)
  - Photosensitivity reaction [Recovered/Resolved]
  - Dermatitis bullous [Recovered/Resolved]
